FAERS Safety Report 8880868 (Version 1)
Quarter: 2012Q4

REPORT INFORMATION
  Report Type: 
  Country: US (occurrence: US)
  Receive Date: 20121101
  Receipt Date: 20121101
  Transmission Date: 20130627
  Serious: Yes (Other)
  Sender: FDA-Public Use
  Company Number: US-ELI_LILLY_AND_COMPANY-US201210006990

PATIENT
  Age: 37 Year
  Sex: Female

DRUGS (3)
  1. STRATTERA [Suspect]
     Indication: ATTENTION DEFICIT/HYPERACTIVITY DISORDER
     Dosage: 25 mg, qd
     Dates: start: 20121011, end: 20121016
  2. STRATTERA [Suspect]
     Dosage: 40 mg, qd
     Dates: start: 20121016
  3. FLUOXETINE (R-FLUOXETINE) [Concomitant]
     Dosage: UNK, unknown

REACTIONS (1)
  - Vaginal haemorrhage [Not Recovered/Not Resolved]
